FAERS Safety Report 19982158 (Version 1)
Quarter: 2021Q4

REPORT INFORMATION
  Report Type: Report from Study
  Country: None (occurrence: US)
  Receive Date: 20211022
  Receipt Date: 20211022
  Transmission Date: 20220303
  Serious: Yes (Other)
  Sender: FDA-Public Use
  Company Number: US-ABBVIE-21K-163-4128058-00

PATIENT
  Age: 35 Year
  Sex: Male

DRUGS (1)
  1. HUMIRA [Suspect]
     Active Substance: ADALIMUMAB
     Indication: Crohn^s disease
     Route: 058

REACTIONS (5)
  - Gallbladder disorder [Recovered/Resolved]
  - Intestinal obstruction [Recovered/Resolved]
  - Pericardial effusion [Recovered/Resolved]
  - Hernia [Recovered/Resolved]
  - Endocrine pancreatic disorder [Unknown]

NARRATIVE: CASE EVENT DATE: 20210501
